FAERS Safety Report 9856237 (Version 1)
Quarter: 2014Q1

REPORT INFORMATION
  Report Type: Spontaneous
  Country: US (occurrence: US)
  Receive Date: 20140130
  Receipt Date: 20140130
  Transmission Date: 20141002
  Serious: Yes (Other)
  Sender: FDA-Public Use
  Company Number: US-PFIZER INC-2014026948

PATIENT
  Sex: Female

DRUGS (1)
  1. XELJANZ [Suspect]
     Dosage: UNK

REACTIONS (2)
  - Sepsis [Unknown]
  - Kidney infection [Unknown]
